FAERS Safety Report 21302651 (Version 8)
Quarter: 2024Q2

REPORT INFORMATION
  Report Type: Spontaneous
  Country: US (occurrence: US)
  Receive Date: 20220907
  Receipt Date: 20240528
  Transmission Date: 20240716
  Serious: Yes (Other)
  Sender: FDA-Public Use
  Company Number: US-PFIZER INC-PV202200058552

PATIENT
  Age: 68 Year
  Sex: Female
  Weight: 75.4 kg

DRUGS (2)
  1. IBRANCE [Suspect]
     Active Substance: PALBOCICLIB
     Indication: Breast cancer female
     Dosage: (1 TABLET ONCE DAILY FOR 21 DAYS FOLLOWED BY 7 DAYS OFF, EVERY CYCLE = 28 DAYS, SWALLOW WHOLE)
     Route: 048
  2. IBRANCE [Suspect]
     Active Substance: PALBOCICLIB
     Dosage: 100 MG

REACTIONS (2)
  - Deafness [Unknown]
  - Hip arthroplasty [Unknown]
